FAERS Safety Report 9733941 (Version 4)
Quarter: 2014Q2

REPORT INFORMATION
  Report Type: Spontaneous
  Country: US (occurrence: US)
  Receive Date: 20131205
  Receipt Date: 20140506
  Transmission Date: 20141212
  Serious: Yes (Hospitalization)
  Sender: FDA-Public Use
  Company Number: US-B.I. PHARMACEUTICALS,INC./RIDGEFIELD-2013-BI-40323BP

PATIENT
  Sex: Male
  Weight: 84 kg

DRUGS (9)
  1. PRADAXA [Suspect]
     Indication: ATRIAL FIBRILLATION
     Dosage: 300 MG
     Route: 065
     Dates: start: 20111005
  2. PRADAXA [Suspect]
     Indication: ANTICOAGULANT THERAPY
  3. SPIRONOLACTONE [Concomitant]
     Route: 065
     Dates: start: 2011
  4. FUROSEMIDE [Concomitant]
     Route: 065
     Dates: start: 2011
  5. MULTAQ [Concomitant]
     Route: 065
     Dates: start: 2011
  6. CARVEDILOL [Concomitant]
     Route: 065
     Dates: start: 2011
  7. OMEPRAZOLE [Concomitant]
     Route: 065
     Dates: start: 2009
  8. POTASSIUM CHLORIDE [Concomitant]
     Route: 065
     Dates: start: 2011
  9. CARISOPRODOL [Concomitant]
     Route: 065
     Dates: start: 2011

REACTIONS (1)
  - Gastrointestinal haemorrhage [Unknown]
